FAERS Safety Report 8045706 (Version 2)
Quarter: 2012Q4

REPORT INFORMATION
  Report Type: 
  Country: US (occurrence: US)
  Receive Date: 20110720
  Receipt Date: 20120904
  Transmission Date: 20130627
  Serious: No
  Sender: FDA-Public Use
  Company Number: US-B.I. PHARMACEUTICALS,INC./RIDGEFIELD-2011-BP-16376BP

PATIENT
  Age: 83 None
  Sex: Female

DRUGS (10)
  1. ZANTAC 150 (RANITIDINE HYDROCHLORIDE) [Suspect]
     Indication: DYSPEPSIA
     Dosage: 300 mg
     Route: 048
     Dates: start: 2011
  2. ZANTAC 150 (RANITIDINE HYDROCHLORIDE) [Suspect]
     Indication: GASTRIC ULCER
  3. CARVEDILOL [Suspect]
     Indication: CARDIAC DISORDER
     Route: 048
     Dates: start: 201110, end: 20120827
  4. CARVEDILOL [Suspect]
     Indication: HEART RATE DECREASED
  5. METOPROLOL [Concomitant]
     Indication: CARDIAC DISORDER
     Route: 048
     Dates: start: 201106
  6. METOPROLOL [Concomitant]
     Indication: BLOOD PRESSURE
  7. PEPTO BISMOL [Concomitant]
     Indication: DYSPEPSIA
     Route: 048
     Dates: start: 2012
  8. PEPTO BISMOL [Concomitant]
     Indication: GASTRIC ULCER
  9. GAS X [Concomitant]
     Indication: DYSPEPSIA
     Route: 048
  10. GAS X [Concomitant]
     Indication: GASTRIC ULCER

REACTIONS (8)
  - Dyspepsia [Not Recovered/Not Resolved]
  - Asthenia [Not Recovered/Not Resolved]
  - Dyspnoea exertional [Not Recovered/Not Resolved]
  - Abdominal distension [Not Recovered/Not Resolved]
  - Eructation [Not Recovered/Not Resolved]
  - Viral infection [Unknown]
  - Insomnia [Not Recovered/Not Resolved]
  - Dyspnoea [Not Recovered/Not Resolved]
